FAERS Safety Report 7983558-5 (Version None)
Quarter: 2011Q4

REPORT INFORMATION
  Report Type: 
  Country: None (occurrence: None)
  Receive Date: 20111215
  Receipt Date: 20111212
  Transmission Date: 20120403
  Serious: Yes (Other)
  Sender: FDA-Public Use
  Company Number: IT-ROXANE LABORATORIES, INC.-2011-RO-01793RO

PATIENT
  Age: 40 Year
  Sex: Male
  Weight: 70 kg

DRUGS (3)
  1. LITHIUM CARBONATE [Suspect]
     Dosage: 900 MG
  2. CLOZAPINE [Suspect]
     Dosage: 275 MG
  3. RISPERIDONE [Suspect]
     Dosage: 2 MG

REACTIONS (4)
  - CONSTIPATION [None]
  - PANCREATITIS [None]
  - SALIVARY HYPERSECRETION [None]
  - TACHYCARDIA [None]
